FAERS Safety Report 7943818-0 (Version None)
Quarter: 2011Q4

REPORT INFORMATION
  Report Type: 
  Country: None (occurrence: None)
  Receive Date: 20111128
  Receipt Date: 20111122
  Transmission Date: 20120403
  Serious: Yes (Other)
  Sender: FDA-Public Use
  Company Number: US-ROCHE-789077

PATIENT
  Sex: Female
  Weight: 104.42 kg

DRUGS (1)
  1. ACCUTANE [Suspect]
     Indication: ACNE
     Dates: start: 19890101, end: 19900101

REACTIONS (8)
  - ANAL FISTULA [None]
  - ERYTHEMA NODOSUM [None]
  - CROHN'S DISEASE [None]
  - PERIRECTAL ABSCESS [None]
  - ARTHRITIS [None]
  - PYODERMA GANGRENOSUM [None]
  - EMOTIONAL DISTRESS [None]
  - INFLAMMATORY BOWEL DISEASE [None]
